FAERS Safety Report 9603756 (Version 3)
Quarter: 2013Q4

REPORT INFORMATION
  Report Type: Spontaneous
  Country: JP (occurrence: JP)
  Receive Date: 20131007
  Receipt Date: 20131025
  Transmission Date: 20140711
  Serious: Yes (Hospitalization, Other)
  Sender: FDA-Public Use
  Company Number: JP-TAKEDA-2013TJP001060

PATIENT
  Age: 73 Year
  Sex: Female

DRUGS (5)
  1. NESINA TABLETS 25MG [Suspect]
     Indication: TYPE 2 DIABETES MELLITUS
     Dosage: 25 MG, QD
     Route: 048
  2. NESINA TABLETS 25MG [Suspect]
     Route: 048
     Dates: end: 20130220
  3. IRBETAN [Suspect]
     Indication: HYPERTENSION
     Dosage: 100 MG, QD
     Route: 048
     Dates: end: 20130220
  4. OXYCONTIN [Concomitant]
     Indication: CANCER PAIN
     Route: 048
  5. OXYCONTIN [Concomitant]
     Route: 048

REACTIONS (1)
  - Interstitial lung disease [Recovering/Resolving]
